FAERS Safety Report 23402625 (Version 2)
Quarter: 2024Q1

REPORT INFORMATION
  Report Type: Spontaneous
  Country: JP (occurrence: JP)
  Receive Date: 20240115
  Receipt Date: 20240117
  Transmission Date: 20240410
  Serious: Yes (Hospitalization, Other)
  Sender: FDA-Public Use
  Company Number: JP-ONO-2024JP000627

PATIENT
  Age: 85 Year
  Sex: Male

DRUGS (2)
  1. OPDIVO [Suspect]
     Active Substance: NIVOLUMAB
     Indication: Transitional cell carcinoma
     Dosage: 240 MG, Q2W
     Route: 041
     Dates: start: 20230613, end: 20231215
  2. PREDONINE [Concomitant]
     Active Substance: PREDNISOLONE
     Indication: Rheumatic disorder
     Dosage: UNK

REACTIONS (2)
  - Immune-mediated adrenal insufficiency [Recovered/Resolved]
  - Adrenocorticotropic hormone deficiency [Recovered/Resolved]
